FAERS Safety Report 17203992 (Version 3)
Quarter: 2020Q2

REPORT INFORMATION
  Report Type: Spontaneous
  Country: CA (occurrence: CA)
  Receive Date: 20191226
  Receipt Date: 20200605
  Transmission Date: 20200713
  Serious: Yes (Death, Hospitalization, Other)
  Sender: FDA-Public Use
  Company Number: CA-EUSA PHARMA-2014-CA-005426

PATIENT
  Age: 3 Month
  Sex: Male

DRUGS (13)
  1. ETOPOSIDE [ETOPOSIDE PHOSPHATE] [Suspect]
     Active Substance: ETOPOSIDE PHOSPHATE
     Indication: CHLOROMA
  2. HYDROCORTISONE SODIUM SUCCINATE [Suspect]
     Active Substance: HYDROCORTISONE SODIUM SUCCINATE
     Indication: BRAIN SARCOMA
  3. METHOTREXATE. [Suspect]
     Active Substance: METHOTREXATE
     Indication: BRAIN SARCOMA
  4. ERWINASE [Suspect]
     Active Substance: ASPARAGINASE ERWINIA CHRYSANTHEMI
     Indication: CHLOROMA
  5. DAUNORUBICIN [DAUNORUBICIN HYDROCHLORIDE] [Suspect]
     Active Substance: DAUNORUBICIN HYDROCHLORIDE
     Indication: CHLOROMA
     Dosage: 5 CYCLES, (2 INDUCTIONS AND 3 INTENSIFICATION)
     Dates: end: 201112
  6. CYTARABINE. [Suspect]
     Active Substance: CYTARABINE
     Indication: DRUG THERAPY
  7. HYDROCORTISONE SODIUM SUCCINATE [Suspect]
     Active Substance: HYDROCORTISONE SODIUM SUCCINATE
     Indication: ACUTE MYELOID LEUKAEMIA
     Route: 037
  8. METHOTREXATE. [Suspect]
     Active Substance: METHOTREXATE
     Indication: ACUTE MYELOID LEUKAEMIA
  9. ERWINASE [Suspect]
     Active Substance: ASPARAGINASE ERWINIA CHRYSANTHEMI
     Indication: ACUTE MYELOID LEUKAEMIA
     Dosage: 5 CYCLES, (2 INDUCTIONS AND 3 INTENSIFICATIONS)
  10. CYTARABINE. [Suspect]
     Active Substance: CYTARABINE
     Indication: CHLOROMA
     Dosage: 2 TIMES WEEKLY, 5 CYCLES, (2 INDUCTIONS AND 3 INTENSIFICATIONS)
     Route: 037
     Dates: end: 201112
  11. ETOPOSIDE [ETOPOSIDE PHOSPHATE] [Suspect]
     Active Substance: ETOPOSIDE PHOSPHATE
     Indication: CHLOROMA
     Dosage: 5 CYCLES, (2 INDUCTIONS AND 3 INTENSIFICATION)
     Route: 037
     Dates: end: 201112
  12. FLUDARABINE [Suspect]
     Active Substance: FLUDARABINE PHOSPHATE
     Indication: ACUTE MYELOID LEUKAEMIA
     Route: 042
  13. FLUDARABINE [Suspect]
     Active Substance: FLUDARABINE PHOSPHATE
     Indication: BRAIN SARCOMA

REACTIONS (15)
  - Hydrocephalus [Unknown]
  - Irritability [Unknown]
  - Brain sarcoma [Unknown]
  - Cerebellar tumour [Unknown]
  - Hypophagia [Unknown]
  - Posturing [Unknown]
  - Leukaemia recurrent [Unknown]
  - Infection [Unknown]
  - Vomiting projectile [Unknown]
  - Septic shock [Unknown]
  - Death [Fatal]
  - Unevaluable event [Unknown]
  - General physical health deterioration [Unknown]
  - Nausea [Unknown]
  - Pyrexia [Unknown]
